FAERS Safety Report 8079367-1 (Version None)
Quarter: 2012Q1

REPORT INFORMATION
  Report Type: 
  Country: None (occurrence: None)
  Receive Date: 20120128
  Receipt Date: 20110822
  Transmission Date: 20120608
  Serious: No
  Sender: FDA-Public Use
  Company Number: US-ABBOTT-11P-163-0848554-00

PATIENT
  Age: 31 Year
  Sex: Female

DRUGS (3)
  1. PREDNISONE TAB [Concomitant]
     Indication: MOBILITY DECREASED
     Dosage: TID ONLY IF INCREASED INFLAMMATION
  2. HUMIRA [Suspect]
     Indication: RHEUMATOID ARTHRITIS
     Dates: start: 20100101
  3. ADDERALL 5 [Concomitant]
     Indication: ATTENTION DEFICIT/HYPERACTIVITY DISORDER

REACTIONS (7)
  - URTICARIA [None]
  - BLISTER [None]
  - CONDITION AGGRAVATED [None]
  - PHOTODERMATOSIS [None]
  - PARAESTHESIA [None]
  - ERYTHEMA [None]
  - PRURITUS [None]
